FAERS Safety Report 7144049-7 (Version None)
Quarter: 2010Q4

REPORT INFORMATION
  Report Type: 
  Country: None (occurrence: None)
  Receive Date: 20101208
  Receipt Date: 20101128
  Transmission Date: 20110411
  Serious: No
  Sender: FDA-Public Use
  Company Number: US-BIOGENIDEC-2010BI042038

PATIENT
  Age: 28 Year
  Sex: Female

DRUGS (2)
  1. AVONEX [Suspect]
     Indication: MULTIPLE SCLEROSIS
     Route: 030
     Dates: start: 20101120
  2. AVONEX [Suspect]
     Route: 030
     Dates: start: 20101101

REACTIONS (4)
  - CRYING [None]
  - DEPRESSED MOOD [None]
  - EYE PAIN [None]
  - INFLUENZA LIKE ILLNESS [None]
